FAERS Safety Report 6848205-4 (Version None)
Quarter: 2010Q3

REPORT INFORMATION
  Report Type: 
  Country: None (occurrence: None)
  Receive Date: 20100716
  Receipt Date: 20100708
  Transmission Date: 20110219
  Serious: Yes (Other)
  Sender: FDA-Public Use
  Company Number: B0665562A

PATIENT
  Age: 55 Year
  Sex: Female

DRUGS (12)
  1. AUGMENTIN '125' [Suspect]
     Indication: URINARY TRACT INFECTION
     Dates: start: 20100628
  2. TRADOL [Suspect]
     Indication: PAIN
     Route: 048
     Dates: start: 20100628
  3. FLUCOL [Concomitant]
  4. UNKNOWN DRUG [Concomitant]
  5. DIAMICRON [Concomitant]
  6. VENTOLIN [Concomitant]
     Route: 055
  7. BISOPROLOL FUMARATE [Concomitant]
  8. ASPIRIN [Concomitant]
  9. CRESTOR [Concomitant]
  10. ELTROXIN [Concomitant]
  11. BECOTIDE [Concomitant]
  12. UNKNOWN DRUG [Concomitant]

REACTIONS (4)
  - CYANOSIS [None]
  - DYSPEPSIA [None]
  - FACE OEDEMA [None]
  - HYPERSENSITIVITY [None]
